FAERS Safety Report 16797523 (Version 1)
Quarter: 2019Q3

REPORT INFORMATION
  Report Type: Spontaneous
  Country: FR (occurrence: FR)
  Receive Date: 20190912
  Receipt Date: 20190912
  Transmission Date: 20191005
  Serious: Yes (Death, Hospitalization)
  Sender: FDA-Public Use
  Company Number: FR-AUROBINDO-AUR-APL-2019-059578

PATIENT
  Age: 36 Year
  Sex: Male

DRUGS (14)
  1. FLUCONAZOLE. [Concomitant]
     Active Substance: FLUCONAZOLE
     Indication: CANDIDA INFECTION
     Dosage: 20 MILLIGRAM, (AFTER EACH DIALYSIS)
     Route: 042
  2. CANCIDAS [Suspect]
     Active Substance: CASPOFUNGIN ACETATE
     Indication: ANTIFUNGAL TREATMENT
     Dosage: 50 MILLIGRAM, ONCE A DAY
     Route: 041
     Dates: start: 200906, end: 200906
  3. CANCIDAS [Suspect]
     Active Substance: CASPOFUNGIN ACETATE
     Indication: SYSTEMIC MYCOSIS
     Dosage: 70 MILLIGRAM, ONCE A DAY
     Route: 041
     Dates: start: 200906, end: 200906
  4. CYCLOSPORINE. [Concomitant]
     Active Substance: CYCLOSPORINE
     Indication: IMMUNOSUPPRESSANT DRUG THERAPY
     Dosage: UNK (ADJUSTED ACCORDING TO DIALYSIS PARAMETERS TO REACH THERAPEUTIC BLOOD LEVELS (300 TO 350 NG/ML))
     Route: 065
  5. SOLU-MEDROL [Concomitant]
     Active Substance: METHYLPREDNISOLONE SODIUM SUCCINATE
     Indication: IMMUNOSUPPRESSION
     Dosage: 10 MILLIGRAM/KILOGRAM, (BODY WEIGHT ON THE DAY OF TRANSPLANTATION)
     Route: 065
  6. SOLU-MEDROL [Concomitant]
     Active Substance: METHYLPREDNISOLONE SODIUM SUCCINATE
     Indication: IMMUNOSUPPRESSANT DRUG THERAPY
     Dosage: 120 MILLIGRAM, ONCE A DAY, TID (THREE DOSES PER DAY)
     Route: 065
  7. BASILIXIMAB [Concomitant]
     Active Substance: BASILIXIMAB
     Indication: IMMUNOSUPPRESSANT DRUG THERAPY
     Dosage: 20 MILLIGRAM, ON THE DAY OF TRANSPLANTATION AND ON DAY 4)
     Route: 042
  8. VORICONAZOLE POWDER FOR SOLUTION FOR INFUSION [Suspect]
     Active Substance: VORICONAZOLE
     Indication: ANTIFUNGAL TREATMENT
     Dosage: 1 DOSAGE FORM, ONCE A DAY, BID (4 MG/KG)
     Route: 042
     Dates: start: 200906, end: 200906
  9. TOBRAMYCIN. [Concomitant]
     Active Substance: TOBRAMYCIN
     Indication: ANTIBIOTIC THERAPY
     Dosage: UNK
     Route: 065
  10. TAZOBACTAM [Concomitant]
     Active Substance: TAZOBACTAM
     Indication: ANTIBIOTIC THERAPY
     Dosage: UNK
     Route: 065
  11. VANCOMYCIN [Concomitant]
     Active Substance: VANCOMYCIN
     Indication: ANTIBIOTIC THERAPY
     Dosage: UNK
     Route: 065
  12. PIPERACILLIN. [Concomitant]
     Active Substance: PIPERACILLIN SODIUM
     Indication: ANTIBIOTIC THERAPY
     Dosage: UNK
     Route: 065
  13. VORICONAZOLE POWDER FOR SOLUTION FOR INFUSION [Suspect]
     Active Substance: VORICONAZOLE
     Indication: FUNGAL INFECTION
     Dosage: 6 MILLIGRAM/KILOGRAM, TWO TIMES A DAY, 1 DF, Q12H (6 MG/KG) (EVERY 12 H AS A LOADING DOSE)
     Route: 042
  14. VORICONAZOLE. [Suspect]
     Active Substance: VORICONAZOLE
     Indication: ANTIFUNGAL TREATMENT
     Dosage: 1 DOSAGE FORM, TWO TIMES A DAY,  DF, Q12H (6 MG/KG) (EVERY 12 H AS A LOADING DOSE)
     Route: 042

REACTIONS (2)
  - Drug ineffective [Fatal]
  - Organ failure [Fatal]

NARRATIVE: CASE EVENT DATE: 2009
